FAERS Safety Report 11118676 (Version 1)
Quarter: 2015Q2

REPORT INFORMATION
  Report Type: Spontaneous
  Country: US (occurrence: None)
  Receive Date: 20150515
  Receipt Date: 20150515
  Transmission Date: 20150821
  Serious: No
  Sender: FDA-Public Use
  Company Number: None

PATIENT
  Age: 33 Year
  Sex: Female
  Weight: 81.65 kg

DRUGS (3)
  1. MIRVASO [Concomitant]
     Active Substance: BRIMONIDINE TARTRATE
  2. SOOLANTRA [Suspect]
     Active Substance: IVERMECTIN
     Indication: ROSACEA
     Route: 061
  3. AZELEAIC ACID GEL [Concomitant]

REACTIONS (4)
  - Application site rash [None]
  - Application site pain [None]
  - Rash papular [None]
  - Rash [None]

NARRATIVE: CASE EVENT DATE: 20150510
